FAERS Safety Report 8019717-5 (Version None)
Quarter: 2012Q1

REPORT INFORMATION
  Report Type: 
  Country: None (occurrence: None)
  Receive Date: 20120103
  Receipt Date: 20111220
  Transmission Date: 20120608
  Serious: Yes (Other)
  Sender: FDA-Public Use
  Company Number: JP-GLAXOSMITHKLINE-B0739729A

PATIENT
  Sex: Female
  Weight: 68 kg

DRUGS (10)
  1. INDERAL [Concomitant]
     Indication: HYPERTENSION
     Dosage: 20MG PER DAY
     Route: 048
  2. NORVASC [Concomitant]
     Indication: HYPERTENSION
     Dosage: 5MG PER DAY
     Route: 048
  3. RHYTHMY [Concomitant]
     Indication: INSOMNIA
     Dosage: 1MG PER DAY
     Route: 048
  4. PROMACTA [Suspect]
     Dosage: 25MG PER DAY
     Route: 048
     Dates: start: 20110721, end: 20110727
  5. PREDNISOLONE [Concomitant]
     Indication: IDIOPATHIC THROMBOCYTOPENIC PURPURA
     Dosage: 10MG PER DAY
     Route: 048
  6. PREDNISOLONE [Concomitant]
     Dosage: 15MG PER DAY
     Route: 048
  7. PROMACTA [Suspect]
     Indication: IDIOPATHIC THROMBOCYTOPENIC PURPURA
     Dosage: 12.5MG PER DAY
     Route: 048
     Dates: start: 20110630, end: 20110720
  8. FAMOTIDINE [Concomitant]
     Indication: GASTRIC ULCER
     Dosage: 20MG PER DAY
     Route: 048
  9. PREDNISOLONE [Concomitant]
     Dosage: 40MG PER DAY
     Route: 048
     Dates: start: 20110819
  10. PROMACTA [Suspect]
     Dosage: 50MG PER DAY
     Route: 048
     Dates: start: 20110728, end: 20110809

REACTIONS (1)
  - MYELOFIBROSIS [None]
